FAERS Safety Report 12135733 (Version 2)
Quarter: 2016Q2

REPORT INFORMATION
  Report Type: Spontaneous
  Country: US (occurrence: US)
  Receive Date: 20160302
  Receipt Date: 20160410
  Transmission Date: 20160815
  Serious: No
  Sender: FDA-Public Use
  Company Number: US-JNJFOC-20160216875

PATIENT
  Age: 53 Year
  Sex: Female

DRUGS (3)
  1. GENERIC PALIPERIDONE [Suspect]
     Active Substance: PALIPERIDONE
     Indication: SCHIZOAFFECTIVE DISORDER
     Route: 048
     Dates: start: 20151022, end: 201512
  2. PALIPERIDONE. [Suspect]
     Active Substance: PALIPERIDONE
     Indication: SCHIZOAFFECTIVE DISORDER
     Route: 048
     Dates: start: 20151012, end: 201512
  3. ATIVAN [Concomitant]
     Active Substance: LORAZEPAM
     Indication: ANXIETY
     Route: 065
     Dates: start: 2014

REACTIONS (6)
  - Hot flush [Unknown]
  - Depression [Not Recovered/Not Resolved]
  - Drooling [Recovered/Resolved]
  - Vision blurred [Recovered/Resolved]
  - Crying [Unknown]
  - Dizziness [Recovered/Resolved]

NARRATIVE: CASE EVENT DATE: 201510
